FAERS Safety Report 14448421 (Version 6)
Quarter: 2018Q3

REPORT INFORMATION
  Report Type: Report from Study
  Country: US (occurrence: US)
  Receive Date: 20180126
  Receipt Date: 20180827
  Transmission Date: 20181010
  Serious: Yes (Hospitalization)
  Sender: FDA-Public Use
  Company Number: US-PFIZER INC-2018022963

PATIENT
  Age: 42 Year
  Sex: Female
  Weight: 69.5 kg

DRUGS (14)
  1. TOFACITINIB CITRATE [Suspect]
     Active Substance: TOFACITINIB CITRATE
     Dosage: UNK
     Route: 048
     Dates: start: 20171216, end: 20180129
  2. ES ACETAMINOPHEN [Concomitant]
     Indication: DISCOMFORT
     Dosage: 2 DF, AS NEEDED
     Route: 048
     Dates: start: 199501
  3. HYDROCODONE/PARACETAMOL [Concomitant]
     Indication: DISCOMFORT
     Dosage: HYDROCODONE 5MG]/[PARACETAMOL 325 MG], Q4H, AS NEEDED
     Route: 048
     Dates: start: 200801
  4. METHOTREXATE SODIUM. [Suspect]
     Active Substance: METHOTREXATE SODIUM
     Indication: RHEUMATOID ARTHRITIS
     Dosage: 15 MG, WEEKLY
     Route: 048
     Dates: start: 20171026, end: 20171210
  5. TRAMADOL. [Concomitant]
     Active Substance: TRAMADOL
     Indication: DISCOMFORT
     Dosage: 50 MG, AS NEEDED
     Route: 048
     Dates: start: 200801
  6. VITAMIN B12 [Concomitant]
     Active Substance: CYANOCOBALAMIN
     Indication: PROPHYLAXIS
     Dosage: 500 UG, DAILY
     Route: 048
     Dates: start: 20170901
  7. CALCIUM/VITAMIN D /01204201/ [Concomitant]
     Active Substance: CALCIUM CARBONATE\ERGOCALCIFEROL
     Indication: SUPPLEMENTATION THERAPY
     Dosage: [CALCIUM CARBONATE 600 MG][ERGOCALCIFEROL 500 IU], DAILY
     Route: 048
     Dates: start: 201606
  8. PREDNISONE. [Concomitant]
     Active Substance: PREDNISONE
     Indication: RHEUMATOID ARTHRITIS
     Dosage: 5MG, 2.5 MG, 2X/DAY
     Route: 048
     Dates: start: 20170817
  9. ALEVE [Concomitant]
     Active Substance: NAPROXEN SODIUM
     Indication: PAIN
     Dosage: 2 DF, AS NEEDED
     Route: 048
     Dates: start: 20170727
  10. GABAPENTIN. [Concomitant]
     Active Substance: GABAPENTIN
     Indication: FIBROMYALGIA
     Dosage: 600 MG, 3X/DAY
     Route: 048
     Dates: start: 20161221
  11. PRILOSEC [Concomitant]
     Active Substance: OMEPRAZOLE MAGNESIUM
     Indication: GASTROOESOPHAGEAL REFLUX DISEASE
     Dosage: 20 MG, DAILY
     Route: 048
     Dates: start: 20170920
  12. TOFACITINIB CITRATE [Suspect]
     Active Substance: TOFACITINIB CITRATE
     Indication: RHEUMATOID ARTHRITIS
     Dosage: 11 MG, DAILY
     Route: 048
     Dates: start: 20171025, end: 20171210
  13. METHOTREXATE SODIUM. [Suspect]
     Active Substance: METHOTREXATE SODIUM
     Dosage: UNK
     Route: 048
     Dates: start: 20171221, end: 20180125
  14. FOLIC ACID. [Concomitant]
     Active Substance: FOLIC ACID
     Indication: RHEUMATOID ARTHRITIS
     Dosage: 1 MG, DAILY
     Route: 048
     Dates: start: 201608

REACTIONS (2)
  - Gallbladder disorder [Recovered/Resolved]
  - Peritoneal disorder [Recovered/Resolved]

NARRATIVE: CASE EVENT DATE: 20171209
